FAERS Safety Report 20688104 (Version 1)
Quarter: 2022Q2

REPORT INFORMATION
  Report Type: Spontaneous
  Country: CA (occurrence: CA)
  Receive Date: 20220408
  Receipt Date: 20220408
  Transmission Date: 20220721
  Serious: Yes (Hospitalization)
  Sender: FDA-Public Use
  Company Number: CA-TEVA-2022-CA-2023836

PATIENT
  Age: 60 Year
  Sex: Male

DRUGS (4)
  1. CHLORPROMAZINE [Interacting]
     Active Substance: CHLORPROMAZINE
     Route: 065
  2. BENZTROPINE MESYLATE [Suspect]
     Active Substance: BENZTROPINE MESYLATE
     Route: 065
  3. LITHIUM CARBONATE [Suspect]
     Active Substance: LITHIUM CARBONATE
     Route: 065
  4. PALIPERIDONE [Suspect]
     Active Substance: PALIPERIDONE
     Route: 065

REACTIONS (7)
  - Asthenia [Unknown]
  - Constipation [Unknown]
  - Delirium [Unknown]
  - Drug interaction [Unknown]
  - Electroconvulsive therapy [Unknown]
  - Neurotoxicity [Unknown]
  - Tremor [Unknown]
